FAERS Safety Report 7606573-X (Version None)
Quarter: 2011Q3

REPORT INFORMATION
  Report Type: 
  Country: None (occurrence: None)
  Receive Date: 20110713
  Receipt Date: 20110704
  Transmission Date: 20111222
  Serious: Yes (Hospitalization)
  Sender: FDA-Public Use
  Company Number: BR-ASTRAZENECA-2011SE40068

PATIENT
  Age: 805 Month
  Sex: Female
  Weight: 52 kg

DRUGS (7)
  1. METOPROLOL TARTRATE [Suspect]
     Route: 048
     Dates: start: 20110625
  2. OMEPRAZOLE [Suspect]
     Indication: GASTRITIS
     Route: 048
     Dates: end: 20100301
  3. METOPROLOL TARTRATE [Suspect]
     Indication: HYPERTENSION
     Route: 048
     Dates: start: 20100101, end: 20100101
  4. METOPROLOL TARTRATE [Suspect]
     Dosage: QUARTER TABLET DAILY
     Route: 048
     Dates: start: 20100101, end: 20110624
  5. OMEPRAZOLE [Suspect]
     Indication: HIATUS HERNIA
     Route: 048
     Dates: end: 20100301
  6. INDAPEN [Concomitant]
     Indication: HYPERTENSION
     Route: 048
  7. AMOXICILLIN [Suspect]
     Indication: NAIL INJURY
     Route: 048

REACTIONS (11)
  - AORTIC VALVE REPAIR [None]
  - GASTRITIS [None]
  - WRONG TECHNIQUE IN DRUG USAGE PROCESS [None]
  - DRUG INEFFECTIVE [None]
  - NAIL INJURY [None]
  - URINARY TRACT INFECTION [None]
  - FALL [None]
  - NEPHROLITHIASIS [None]
  - HIATUS HERNIA [None]
  - FEELING DRUNK [None]
  - SEDATION [None]
